FAERS Safety Report 13790838 (Version 2)
Quarter: 2017Q3

REPORT INFORMATION
  Report Type: Spontaneous
  Country: FR (occurrence: FR)
  Receive Date: 20170725
  Receipt Date: 20170802
  Transmission Date: 20171127
  Serious: Yes (Other)
  Sender: FDA-Public Use
  Company Number: FR-GLENMARK PHARMACEUTICALS-2017GMK028299

PATIENT
  Age: 9 Decade
  Sex: Male

DRUGS (2)
  1. LINEZOLID. [Suspect]
     Active Substance: LINEZOLID
     Indication: ABSCESS
     Dosage: 600 MG, 12 HOURS
     Route: 065
  2. MEROPENEM. [Concomitant]
     Active Substance: MEROPENEM
     Indication: ABSCESS
     Dosage: 2 G, 8 HOURS
     Route: 042

REACTIONS (1)
  - Haematotoxicity [Recovered/Resolved]
